FAERS Safety Report 21129989 (Version 2)
Quarter: 2022Q3

REPORT INFORMATION
  Report Type: Spontaneous
  Country: US (occurrence: US)
  Receive Date: 20220726
  Receipt Date: 20220728
  Transmission Date: 20221027
  Serious: No
  Sender: FDA-Public Use
  Company Number: US-BIOGEN-2022BI01128668

PATIENT
  Age: 60 Year
  Sex: Female

DRUGS (2)
  1. VUMERITY [Suspect]
     Active Substance: DIROXIMEL FUMARATE
     Indication: Multiple sclerosis
     Route: 050
     Dates: start: 20210629, end: 20220722
  2. VUMERITY [Suspect]
     Active Substance: DIROXIMEL FUMARATE
     Route: 050
     Dates: start: 20220526, end: 20220531

REACTIONS (5)
  - Intentional product misuse [Recovered/Resolved]
  - Laboratory test abnormal [Unknown]
  - White blood cell disorder [Unknown]
  - Blood test abnormal [Unknown]
  - T-lymphocyte count abnormal [Unknown]

NARRATIVE: CASE EVENT DATE: 20220526
